FAERS Safety Report 4423361-6 (Version None)
Quarter: 2004Q3

REPORT INFORMATION
  Report Type: 
  Country: None (occurrence: None)
  Receive Date: 20040809
  Receipt Date: 20000406
  Transmission Date: 20050211
  Serious: Yes (Hospitalization)
  Sender: FDA-Public Use
  Company Number: FLUV00300000946

PATIENT
  Age: 66 Year
  Sex: Male

DRUGS (8)
  1. LUVOX [Suspect]
     Indication: DEPRESSION
     Dosage: 50 MG DAILY PO
     Route: 048
     Dates: start: 20000118
  2. NEUROTROPIN (ORGAN LYSATE, STANDARIZED) [Suspect]
     Indication: ABDOMINAL PAIN
     Dosage: 3 DF DAILY PO
     Route: 048
     Dates: start: 19990817
  3. ETODOLAC [Suspect]
     Indication: ABDOMINAL PAIN
     Dosage: 2 DF DAILY PO
     Route: 048
     Dates: start: 19990709
  4. TEGRETOL [Concomitant]
  5. PURSENNID (SENNA LEAF) [Concomitant]
  6. SEDES G [Concomitant]
  7. AMOBAN (ZOPLICLONE) [Concomitant]
  8. TIZANIDINE HCL [Concomitant]

REACTIONS (4)
  - ABDOMINAL DISCOMFORT [None]
  - ABDOMINAL PAIN [None]
  - FLATULENCE [None]
  - THIRST [None]
